FAERS Safety Report 5507794-2 (Version None)
Quarter: 2007Q4

REPORT INFORMATION
  Report Type: 
  Country: None (occurrence: None)
  Receive Date: 20071106
  Receipt Date: 20071030
  Transmission Date: 20080405
  Serious: Yes (Other)
  Sender: FDA-Public Use
  Company Number: JP-MERCK-0709USA03497

PATIENT
  Age: 82 Year
  Sex: Female

DRUGS (5)
  1. FOSAMAX [Suspect]
     Indication: OSTEOPOROSIS
     Route: 048
     Dates: start: 20061025, end: 20070820
  2. MOBIC [Concomitant]
     Route: 048
     Dates: start: 20050301
  3. ETODOLAC [Concomitant]
     Route: 048
     Dates: start: 20050301
  4. TICLOPIDINE HCL [Concomitant]
     Route: 048
  5. KETAS [Concomitant]
     Route: 048

REACTIONS (2)
  - OSTEOMYELITIS [None]
  - PRIMARY SEQUESTRUM [None]
